FAERS Safety Report 10590244 (Version 1)
Quarter: 2014Q4

REPORT INFORMATION
  Report Type: Spontaneous
  Country: US (occurrence: US)
  Receive Date: 20141118
  Receipt Date: 20141118
  Transmission Date: 20150529
  Serious: No
  Sender: FDA-Public Use
  Company Number: US-PFIZER INC-2014316921

PATIENT
  Age: 54 Year
  Sex: Female

DRUGS (2)
  1. CELEBREX [Suspect]
     Active Substance: CELECOXIB
     Dosage: 100 MG, 1X/DAY
  2. IBUPROFEN. [Interacting]
     Active Substance: IBUPROFEN
     Dosage: UNK

REACTIONS (2)
  - Drug interaction [Unknown]
  - Abdominal pain upper [Unknown]
